FAERS Safety Report 7440580-5 (Version None)
Quarter: 2011Q2

REPORT INFORMATION
  Report Type: 
  Country: None (occurrence: None)
  Receive Date: 20110427
  Receipt Date: 20110420
  Transmission Date: 20111010
  Serious: Yes (Death, Life-Threatening)
  Sender: FDA-Public Use
  Company Number: B0690788A

PATIENT
  Sex: Male
  Weight: 67 kg

DRUGS (48)
  1. FUNGUARD [Suspect]
     Route: 042
     Dates: start: 20031118, end: 20031231
  2. FLUDARABINE PHOSPHATE [Concomitant]
     Indication: STEM CELL TRANSPLANT
     Dosage: 50MG PER DAY
     Route: 065
     Dates: start: 20031121, end: 20031124
  3. CYCLOSPORINE [Concomitant]
     Indication: IMMUNOSUPPRESSION
     Route: 065
     Dates: start: 20031123, end: 20031212
  4. NEO-MINOPHAGEN [Concomitant]
     Route: 042
     Dates: start: 20031102, end: 20031107
  5. ZOVIRAX [Concomitant]
     Dosage: 1000MG PER DAY
     Route: 048
     Dates: start: 20031109, end: 20031202
  6. CRAVIT [Concomitant]
     Dosage: 300MG PER DAY
     Route: 048
     Dates: start: 20031109, end: 20031204
  7. MUCOSTA [Concomitant]
     Dosage: 300MG PER DAY
     Route: 048
     Dates: start: 20031223, end: 20040115
  8. UNASYN [Suspect]
     Dosage: 3G PER DAY
     Dates: start: 20040110, end: 20040114
  9. ULCERLMIN [Concomitant]
     Dosage: 3G PER DAY
     Route: 048
     Dates: start: 20031026, end: 20031202
  10. MAXIPIME [Concomitant]
     Dosage: 2G PER DAY
     Route: 042
     Dates: start: 20031117, end: 20031119
  11. TARGOCID [Concomitant]
     Dosage: 400MG PER DAY
     Route: 042
     Dates: start: 20031231, end: 20040110
  12. ALLOPURINOL [Concomitant]
     Dosage: 500MG PER DAY
     Route: 048
     Dates: start: 20031109, end: 20031222
  13. MEROPENEM [Concomitant]
     Dosage: 1G PER DAY
     Route: 042
     Dates: start: 20031123, end: 20031202
  14. HABEKACIN [Concomitant]
     Dosage: 200MG PER DAY
     Dates: start: 20031203, end: 20031224
  15. BEZATOL SR [Concomitant]
     Dosage: 400MG PER DAY
     Route: 048
     Dates: start: 20031228, end: 20040107
  16. REMICADE [Concomitant]
     Indication: IMMUNOSUPPRESSION
     Dosage: 600MG PER DAY
     Route: 042
     Dates: start: 20040101, end: 20040101
  17. HABEKACIN [Concomitant]
     Dates: start: 20031107, end: 20031117
  18. TARGOCID [Concomitant]
     Dosage: 800MG PER DAY
     Route: 042
     Dates: start: 20031120, end: 20031202
  19. MODACIN [Concomitant]
     Dosage: 2G PER DAY
     Route: 042
     Dates: start: 20031203, end: 20031215
  20. PREDONINE [Concomitant]
     Dates: start: 20031227, end: 20040110
  21. UNKNOWN DRUG [Concomitant]
     Dosage: 250ML PER DAY
     Route: 042
     Dates: start: 20040104, end: 20040114
  22. CIPROXAN [Suspect]
     Dosage: 300MG PER DAY
     Route: 042
     Dates: start: 20031225, end: 20031230
  23. VANCOMYCIN HYDROCHLORIDE [Concomitant]
     Dosage: 4IUAX PER DAY
     Route: 048
     Dates: start: 20031205, end: 20031222
  24. FLUITRAN [Concomitant]
     Dosage: 4MG PER DAY
     Route: 048
     Dates: start: 20031226, end: 20040107
  25. MORPHINE HYDROCHLORIDE [Concomitant]
     Dates: start: 20040107, end: 20040115
  26. VANCOMYCIN HYDROCHLORIDE [Suspect]
     Dosage: 2G PER DAY
     Route: 048
     Dates: start: 20031026, end: 20031108
  27. AMIKACIN SULFATE [Suspect]
     Dosage: 300MG PER DAY
     Dates: start: 20040110, end: 20040114
  28. CYMERIN [Concomitant]
     Indication: STEM CELL TRANSPLANT
     Dosage: 500MG PER DAY
     Route: 042
     Dates: start: 20031117, end: 20031117
  29. CYMERIN [Concomitant]
     Dosage: 500MG PER DAY
     Route: 042
     Dates: start: 20031120, end: 20031120
  30. NOVANTRONE [Concomitant]
     Dosage: 13MG PER DAY
     Route: 042
     Dates: start: 20031110, end: 20031111
  31. BENAMBAX [Concomitant]
     Dosage: 150MG TWICE PER DAY
     Dates: start: 20040111, end: 20040113
  32. ALKERAN [Suspect]
     Indication: STEM CELL TRANSPLANT
     Dosage: 160MG PER DAY
     Route: 042
     Dates: start: 20031124, end: 20031124
  33. SANDIMMUNE [Concomitant]
     Route: 065
     Dates: start: 20040111
  34. FOSMICIN-S [Concomitant]
     Dosage: 2G PER DAY
     Route: 042
     Dates: start: 20031107, end: 20031117
  35. MATULANE [Concomitant]
     Dosage: 150MG PER DAY
     Route: 048
     Dates: start: 20031108, end: 20031108
  36. LASTET [Concomitant]
     Dosage: 160MG PER DAY
     Route: 042
     Dates: start: 20031110, end: 20031113
  37. MODACIN [Concomitant]
     Dosage: 2G PER DAY
     Route: 042
     Dates: start: 20040101, end: 20040110
  38. GANCICLOVIR SODIUM [Concomitant]
     Dosage: 150MG PER DAY
     Dates: start: 20031212, end: 20031219
  39. FLUITRAN [Concomitant]
     Dosage: 4MG PER DAY
     Route: 048
     Dates: start: 20031203, end: 20031211
  40. NAIXAN [Concomitant]
     Dosage: 200MG PER DAY
     Route: 048
     Dates: start: 20031228, end: 20040107
  41. DALACIN [Concomitant]
     Dosage: 600MG PER DAY
     Dates: start: 20031205, end: 20031215
  42. CELLCEPT [Concomitant]
     Dosage: 500MG PER DAY
     Route: 048
     Dates: start: 20031227, end: 20040105
  43. FOSCAVIR [Concomitant]
     Dosage: 120ML TWICE PER DAY
     Route: 042
     Dates: start: 20040112, end: 20040114
  44. FUNGUARD [Suspect]
     Dosage: 100MG PER DAY
     Route: 042
     Dates: start: 20040105, end: 20040115
  45. SANDIMMUNE [Concomitant]
     Indication: IMMUNOSUPPRESSION
     Dosage: 1ML PER DAY
     Route: 065
     Dates: start: 20031227, end: 20040107
  46. CYLOCIDE [Concomitant]
     Dosage: 3200MG PER DAY
     Route: 042
     Dates: start: 20031110, end: 20031111
  47. MINOMYCIN [Concomitant]
     Dosage: 200MG PER DAY
     Route: 042
     Dates: start: 20031120, end: 20031202
  48. SOLU-MEDROL [Concomitant]
     Route: 042
     Dates: start: 20040108, end: 20040114

REACTIONS (4)
  - RESPIRATORY FAILURE [None]
  - GRAFT VERSUS HOST DISEASE [None]
  - VENOOCCLUSIVE LIVER DISEASE [None]
  - INFECTION [None]
